FAERS Safety Report 7400025-8 (Version None)
Quarter: 2011Q2

REPORT INFORMATION
  Report Type: 
  Country: None (occurrence: None)
  Receive Date: 20110407
  Receipt Date: 20110328
  Transmission Date: 20111010
  Serious: Yes (Death, Hospitalization, Other)
  Sender: FDA-Public Use
  Company Number: JP-JNJFOC-20101201031

PATIENT
  Sex: Female
  Weight: 58 kg

DRUGS (9)
  1. DOXORUBICIN HCL [Suspect]
     Route: 042
  2. DOXORUBICIN HCL [Suspect]
     Route: 042
  3. DOXORUBICIN HCL [Suspect]
     Route: 042
  4. DOXORUBICIN HCL [Suspect]
     Route: 042
  5. DOXORUBICIN HCL [Suspect]
     Route: 042
  6. DOXORUBICIN HCL [Suspect]
     Indication: OVARIAN CANCER RECURRENT
     Route: 042
  7. DOXORUBICIN HCL [Suspect]
     Route: 042
  8. DOXORUBICIN HCL [Suspect]
     Route: 042
  9. DOXORUBICIN HCL [Suspect]
     Route: 042

REACTIONS (8)
  - EXTRAVASATION [None]
  - SKIN NECROSIS [None]
  - OVARIAN CANCER RECURRENT [None]
  - FEBRILE NEUTROPENIA [None]
  - PLATELET COUNT DECREASED [None]
  - ERYTHEMA [None]
  - SKIN EROSION [None]
  - FEELING HOT [None]
